FAERS Safety Report 23811521 (Version 1)
Quarter: 2024Q2

REPORT INFORMATION
  Report Type: Spontaneous
  Country: US (occurrence: US)
  Receive Date: 20240503
  Receipt Date: 20240503
  Transmission Date: 20240715
  Serious: Yes (Hospitalization)
  Sender: FDA-Public Use
  Company Number: US-SPECGX-T202401018

PATIENT
  Age: 8 Decade
  Sex: Female

DRUGS (9)
  1. ATROPINE\DIPHENOXYLATE [Suspect]
     Active Substance: ATROPINE\DIPHENOXYLATE
     Indication: Diarrhoea
     Dosage: 2 DOSAGE FORM, QID
     Route: 065
  2. OCTREOTIDE [Suspect]
     Active Substance: OCTREOTIDE\OCTREOTIDE ACETATE
     Indication: Diarrhoea
     Dosage: 300 MICROGRAM, Q8H (30 MG-60 MG ONCE A MONTH)
     Route: 065
  3. LOPERAMIDE [Suspect]
     Active Substance: LOPERAMIDE
     Indication: Diarrhoea
     Dosage: 6 MILLIGRAM, QID
     Route: 065
  4. CHOLESTYRAMINE [Suspect]
     Active Substance: CHOLESTYRAMINE
     Indication: Diarrhoea
     Dosage: 4 GRAM, Q12H
     Route: 065
  5. OPIUM TINCTURE [Suspect]
     Active Substance: MORPHINE
     Indication: Diarrhoea
     Dosage: Q4H PRN
     Route: 065
  6. TELOTRISTAT ETHYL [Concomitant]
     Active Substance: TELOTRISTAT ETHYL
     Indication: Diarrhoea
     Dosage: 200 MILLIGRAM, TID
     Route: 065
  7. TELOTRISTAT ETHYL [Concomitant]
     Active Substance: TELOTRISTAT ETHYL
     Dosage: 250 MILLIGRAM, TID (TITRATED)
     Route: 065
  8. BUDESONIDE [Concomitant]
     Active Substance: BUDESONIDE
     Indication: Colitis microscopic
     Dosage: 9 MILLIGRAM, QD (FOUR-WEEK COURSE)
     Route: 065
  9. BUDESONIDE [Concomitant]
     Active Substance: BUDESONIDE
     Indication: Diarrhoea
     Dosage: 6 MILLIGRAM, QD (TWO WEEKS)
     Route: 065

REACTIONS (5)
  - Acute kidney injury [Unknown]
  - Hypokalaemia [Unknown]
  - Hypomagnesaemia [Unknown]
  - Malnutrition [Unknown]
  - Drug ineffective [Unknown]
